FAERS Safety Report 8027883-0 (Version None)
Quarter: 2012Q1

REPORT INFORMATION
  Report Type: 
  Country: None (occurrence: None)
  Receive Date: 20120106
  Receipt Date: 20120102
  Transmission Date: 20120608
  Serious: Yes (Hospitalization, Other)
  Sender: FDA-Public Use
  Company Number: BR-PFIZER INC-2011164295

PATIENT
  Age: 54 Year
  Sex: Female
  Weight: 45 kg

DRUGS (9)
  1. MELOXICAM [Concomitant]
     Indication: FIBROMYALGIA
     Dosage: UNK
     Dates: start: 20090101
  2. PREDNISONE [Concomitant]
     Indication: EMPHYSEMA
     Dosage: UNK
  3. VENLAFAXINE [Concomitant]
     Indication: DEPRESSION
     Dosage: UNK
  4. VARENICLINE TARTRATE [Suspect]
     Indication: SMOKING CESSATION THERAPY
     Dosage: UNK
     Route: 048
     Dates: start: 20110111, end: 20110101
  5. RISPERIDONE [Concomitant]
     Indication: DEPRESSION
     Dosage: 1 MG, UNK
  6. ALENIA [Concomitant]
     Indication: EMPHYSEMA
     Dosage: DAILY
     Dates: start: 20100101
  7. ZOLPIDEM [Concomitant]
     Indication: DEPRESSION
     Dosage: 1 MG, UNK
  8. AMPLICTIL [Concomitant]
     Indication: DEPRESSION
     Dosage: 25 MG, UNK
  9. PAMELOR [Concomitant]
     Indication: DEPRESSION
     Dosage: UNK

REACTIONS (5)
  - MAJOR DEPRESSION [None]
  - DIZZINESS [None]
  - LETHARGY [None]
  - CIRCUMSTANCE OR INFORMATION CAPABLE OF LEADING TO MEDICATION ERROR [None]
  - TACHYCARDIA [None]
